FAERS Safety Report 7047031-3 (Version None)
Quarter: 2010Q4

REPORT INFORMATION
  Report Type: 
  Country: None (occurrence: None)
  Receive Date: 20101015
  Receipt Date: 20101005
  Transmission Date: 20110411
  Serious: Yes (Death)
  Sender: FDA-Public Use
  Company Number: US-SANOFI-AVENTIS-2010SA061322

PATIENT
  Age: 27 Year
  Sex: Male

DRUGS (14)
  1. LOVENOX [Suspect]
     Route: 058
     Dates: start: 20080207, end: 20080211
  2. HEPARIN SODIUM [Suspect]
     Indication: DEEP VEIN THROMBOSIS
     Route: 041
     Dates: start: 20080211, end: 20080212
  3. HEPARIN SODIUM [Suspect]
     Route: 041
     Dates: start: 20080214, end: 20080215
  4. ABILIFY [Concomitant]
  5. CLORAZEPATE DIPOTASSIUM [Concomitant]
  6. SEROQUEL [Concomitant]
  7. SEPTRA [Concomitant]
  8. CORTISONE [Concomitant]
  9. TYLENOL [Concomitant]
  10. ROCEPHIN [Concomitant]
  11. AZITHROMYCIN [Concomitant]
  12. AVELOX [Concomitant]
  13. CEFEPIME [Concomitant]
  14. CIPROFLOXACIN [Concomitant]

REACTIONS (1)
  - DEEP VEIN THROMBOSIS [None]
